FAERS Safety Report 4690163-5 (Version None)
Quarter: 2005Q2

REPORT INFORMATION
  Report Type: 
  Country: None (occurrence: None)
  Receive Date: 20050613
  Receipt Date: 20050530
  Transmission Date: 20051028
  Serious: Yes (Other)
  Sender: FDA-Public Use
  Company Number: 2005EU001111

PATIENT
  Age: 59 Year
  Sex: Female

DRUGS (3)
  1. PROGRAF [Suspect]
     Indication: HEART TRANSPLANT
  2. AZATHIOPRINE [Concomitant]
  3. PREDNISOLONE [Concomitant]

REACTIONS (2)
  - NEPHROSCLEROSIS [None]
  - RENAL TUBULAR DISORDER [None]
